FAERS Safety Report 9743191 (Version 2)
Quarter: 2013Q4

REPORT INFORMATION
  Report Type: Spontaneous
  Country: US (occurrence: US)
  Receive Date: 20131210
  Receipt Date: 20131210
  Transmission Date: 20140711
  Serious: Yes (Other)
  Sender: FDA-Public Use
  Company Number: US-GILEAD-2009-0024385

PATIENT
  Sex: Female

DRUGS (9)
  1. LETAIRIS [Suspect]
     Indication: PULMONARY ARTERIAL HYPERTENSION
     Route: 048
     Dates: start: 2009
  2. NORVASC [Concomitant]
  3. LASIX [Concomitant]
  4. ALBUTEROL [Concomitant]
  5. PROVENTIL [Concomitant]
  6. PRILOSEC [Concomitant]
  7. POTASSIUM [Concomitant]
  8. SYNTHROID [Concomitant]
  9. EFFEXOR [Concomitant]

REACTIONS (1)
  - Haemoglobin decreased [Unknown]
